FAERS Safety Report 21409399 (Version 6)
Quarter: 2023Q1

REPORT INFORMATION
  Report Type: Report from Study
  Country: PE (occurrence: None)
  Receive Date: 20221004
  Receipt Date: 20230209
  Transmission Date: 20230417
  Serious: Yes (Hospitalization)
  Sender: FDA-Public Use
  Company Number: PE-ROCHE-3162279

PATIENT
  Age: 49 Year
  Sex: Male
  Weight: 86.2 kg

DRUGS (21)
  1. OCRELIZUMAB [Suspect]
     Active Substance: OCRELIZUMAB
     Indication: Relapsing-remitting multiple sclerosis
     Dosage: START DATE OF MOST RECENT DOSE OF STUDY DRUG PRIOR TO SAE: 31/JAN/2022, START DATE OF MOST RECENT DO
     Route: 042
     Dates: start: 20210219
  2. LOSARTAN [Concomitant]
     Active Substance: LOSARTAN
     Indication: Hypertension
     Dosage: ONGOING : YES
     Route: 048
     Dates: start: 20210220
  3. FOLIC ACID [Concomitant]
     Active Substance: FOLIC ACID
     Indication: Relapsing-remitting multiple sclerosis
     Dosage: GIVEN FOR PROPHYLAXIS, ONGOING : YES
     Route: 048
     Dates: start: 2020
  4. ACETAMINOPHEN [Concomitant]
     Active Substance: ACETAMINOPHEN
     Dosage: ONGOING : NO
     Route: 048
     Dates: start: 20220718, end: 20220718
  5. ACETAMINOPHEN [Concomitant]
     Active Substance: ACETAMINOPHEN
     Dosage: ONGOING : NO
     Route: 048
     Dates: start: 20220131, end: 20220131
  6. ACETAMINOPHEN [Concomitant]
     Active Substance: ACETAMINOPHEN
     Dosage: ONGOING : NO
     Route: 048
     Dates: start: 20210305, end: 20210305
  7. ACETAMINOPHEN [Concomitant]
     Active Substance: ACETAMINOPHEN
     Dosage: ONGOING : NO
     Route: 048
     Dates: start: 20210806, end: 20210806
  8. ACETAMINOPHEN [Concomitant]
     Active Substance: ACETAMINOPHEN
     Dosage: ONGOING : NO
     Route: 048
     Dates: start: 20210219, end: 20210219
  9. METHYLPREDNISOLONE [Concomitant]
     Active Substance: METHYLPREDNISOLONE
     Route: 042
     Dates: start: 20220718, end: 20220718
  10. METHYLPREDNISOLONE [Concomitant]
     Active Substance: METHYLPREDNISOLONE
     Route: 042
     Dates: start: 20210305, end: 20210305
  11. METHYLPREDNISOLONE [Concomitant]
     Active Substance: METHYLPREDNISOLONE
     Route: 042
     Dates: start: 20210806, end: 20210806
  12. METHYLPREDNISOLONE [Concomitant]
     Active Substance: METHYLPREDNISOLONE
     Route: 042
     Dates: start: 20210219, end: 20210219
  13. METHYLPREDNISOLONE [Concomitant]
     Active Substance: METHYLPREDNISOLONE
     Route: 042
     Dates: start: 20220131, end: 20220131
  14. CAPTOPRIL [Concomitant]
     Active Substance: CAPTOPRIL
     Indication: Hypertension
     Route: 060
     Dates: start: 20210219, end: 20210219
  15. TANSULOSINA [Concomitant]
     Indication: Urinary incontinence
     Route: 048
     Dates: start: 2016, end: 20210315
  16. CHLORPHENIRAMINE MALEATE [Concomitant]
     Active Substance: CHLORPHENIRAMINE MALEATE
     Dosage: ONGOING : NO
     Route: 048
     Dates: start: 20220718, end: 20220718
  17. CHLORPHENIRAMINE MALEATE [Concomitant]
     Active Substance: CHLORPHENIRAMINE MALEATE
     Dosage: ONGOING : NO
     Route: 048
     Dates: start: 20220131, end: 20220131
  18. CHLORPHENIRAMINE MALEATE [Concomitant]
     Active Substance: CHLORPHENIRAMINE MALEATE
     Dosage: ONGOING : NO
     Route: 048
     Dates: start: 20210305, end: 20210305
  19. CHLORPHENIRAMINE MALEATE [Concomitant]
     Active Substance: CHLORPHENIRAMINE MALEATE
     Dosage: ONGOING : NO
     Route: 048
     Dates: start: 20210806, end: 20210806
  20. CHLORPHENIRAMINE MALEATE [Concomitant]
     Active Substance: CHLORPHENIRAMINE MALEATE
     Dosage: ONGOING : NO
     Route: 048
     Dates: start: 20210219, end: 20210219
  21. BCG VACCINE [Concomitant]
     Active Substance: BCG VACCINE
     Dates: start: 19830318

REACTIONS (1)
  - Urinary tract infection [Recovered/Resolved]

NARRATIVE: CASE EVENT DATE: 20220711
